FAERS Safety Report 6730080-X (Version None)
Quarter: 2010Q2

REPORT INFORMATION
  Report Type: 
  Country: None (occurrence: None)
  Receive Date: 20100518
  Receipt Date: 20100510
  Transmission Date: 20101027
  Serious: Yes (Life-Threatening, Hospitalization, Other)
  Sender: FDA-Public Use
  Company Number: DE-SANOFI-AVENTIS-2010SA017494

PATIENT
  Age: 66 Year
  Sex: Male
  Weight: 94 kg

DRUGS (6)
  1. MULTAQ [Suspect]
     Route: 048
     Dates: start: 20100126
  2. ACETYLSALICYLIC ACID [Concomitant]
     Route: 048
  3. METOPROLOL SUCCINATE [Concomitant]
     Route: 048
  4. CLEXANE [Concomitant]
     Route: 058
     Dates: start: 20100201
  5. LORZAAR [Concomitant]
     Indication: HYPERTENSION
     Route: 048
  6. SEROQUEL [Concomitant]
     Indication: ANXIETY
     Route: 048

REACTIONS (2)
  - ATRIAL FIBRILLATION [None]
  - VENTRICULAR TACHYCARDIA [None]
